FAERS Safety Report 7565276-0 (Version None)
Quarter: 2011Q2

REPORT INFORMATION
  Report Type: 
  Country: None (occurrence: None)
  Receive Date: 20110622
  Receipt Date: 20110613
  Transmission Date: 20111010
  Serious: Yes (Hospitalization, Other)
  Sender: FDA-Public Use
  Company Number: IN-BRISTOL-MYERS SQUIBB COMPANY-14746002

PATIENT
  Age: 52 Year
  Sex: Female

DRUGS (7)
  1. PLACEBO [Suspect]
     Indication: THROMBOSIS PROPHYLAXIS
     Route: 048
     Dates: start: 20090716, end: 20090815
  2. WARFARIN SODIUM [Suspect]
     Indication: THROMBOSIS PROPHYLAXIS
     Route: 048
     Dates: start: 20090716, end: 20090815
  3. HEPARIN [Concomitant]
     Dosage: FORM: INJ
     Dates: start: 20090816, end: 20090821
  4. ENOXAPARIN SODIUM [Concomitant]
     Dosage: INJ
     Dates: start: 20090816, end: 20090821
  5. ASPIRIN [Concomitant]
     Dosage: FORM:TAB
     Dates: start: 20090817
  6. ECOSPRIN [Concomitant]
     Dosage: TAB
     Dates: start: 20100817
  7. THYRONORM [Concomitant]
     Dosage: TABS
     Dates: start: 20051126

REACTIONS (1)
  - MYOCARDIAL INFARCTION [None]
